FAERS Safety Report 5043141-0 (Version None)
Quarter: 2006Q2

REPORT INFORMATION
  Report Type: 
  Country: None (occurrence: None)
  Receive Date: 20060627
  Receipt Date: 20060613
  Transmission Date: 20061013
  Serious: Yes (Other)
  Sender: FDA-Public Use
  Company Number: 2006073542

PATIENT
  Age: 50 Year
  Sex: Female

DRUGS (2)
  1. TRIAZOLAM [Suspect]
     Indication: ILL-DEFINED DISORDER
     Dosage: ORAL
     Route: 048
     Dates: start: 20060519
  2. VIT K CAP [Concomitant]

REACTIONS (1)
  - EYELID PTOSIS [None]
